FAERS Safety Report 7535774-4 (Version None)
Quarter: 2011Q2

REPORT INFORMATION
  Report Type: 
  Country: None (occurrence: None)
  Receive Date: 20110609
  Receipt Date: 20110320
  Transmission Date: 20111010
  Serious: No
  Sender: FDA-Public Use
  Company Number: US-KINGPHARMUSA00001-K201100302

PATIENT
  Sex: Female

DRUGS (3)
  1. ADVAIR DISKUS 100/50 [Concomitant]
     Indication: LUNG DISORDER
     Dosage: UNK
  2. EMBEDA [Suspect]
     Indication: BACK PAIN
     Dosage: 50 MG, EVERY 12 HOURS
     Route: 048
     Dates: start: 20100101
  3. MORPHINE [Concomitant]
     Indication: BREAKTHROUGH PAIN
     Dosage: UNK

REACTIONS (1)
  - DRUG INEFFECTIVE [None]
